FAERS Safety Report 9034547 (Version 1)
Quarter: 2013Q1

REPORT INFORMATION
  Report Type: Spontaneous
  Country: GB (occurrence: None)
  Receive Date: 20130111
  Receipt Date: 20130111
  Transmission Date: 20140127
  Serious: Yes (Other)
  Sender: FDA-Public Use
  Company Number: AUR-APL-2013-00071

PATIENT
  Age: 43 Year
  Sex: Female

DRUGS (3)
  1. RAMIPRIL (RAMIPRIL) [Suspect]
     Indication: BLOOD PRESSURE
  2. LABETALOL (LABETALOL) [Suspect]
     Indication: BLOOD PRESSURE
  3. BENDROFLUMETHIAZIDE [Suspect]
     Indication: BLOOD PRESSURE

REACTIONS (12)
  - Blood pressure increased [None]
  - Proteinuria [None]
  - Caesarean section [None]
  - Stillbirth [None]
  - Premature rupture of membranes [None]
  - Alanine aminotransferase increased [None]
  - Blood creatinine increased [None]
  - Oedema peripheral [None]
  - Oedema peripheral [None]
  - Face oedema [None]
  - Foetal growth restriction [None]
  - Exposure during pregnancy [None]
